FAERS Safety Report 8419430 (Version 2)
Quarter: 2013Q1

REPORT INFORMATION
  Report Type: Spontaneous
  Country: VE (occurrence: VE)
  Receive Date: 20120221
  Receipt Date: 20130219
  Transmission Date: 20140127
  Serious: Yes (Other)
  Sender: FDA-Public Use
  Company Number: PHHY2011VE85273

PATIENT
  Age: 63 Year
  Sex: Female

DRUGS (2)
  1. ACLASTA [Suspect]
     Indication: OSTEOPOROSIS
     Dosage: 5 MG/ ONCE A YEAR
     Route: 042
     Dates: start: 201012
  2. IDEOS [Concomitant]
     Indication: BONE DISORDER
     Dosage: 1 DF, MONTHLY
     Route: 048

REACTIONS (5)
  - Fall [Recovering/Resolving]
  - Spinal pain [Recovered/Resolved]
  - Weight increased [Unknown]
  - Pain in extremity [Not Recovered/Not Resolved]
  - Bone pain [Recovering/Resolving]
